FAERS Safety Report 4292004-7 (Version None)
Quarter: 2004Q1

REPORT INFORMATION
  Report Type: 
  Country: None (occurrence: None)
  Receive Date: 20040126
  Receipt Date: 20030923
  Transmission Date: 20041129
  Serious: No
  Sender: FDA-Public Use
  Company Number: USA030946706

PATIENT
  Age: 55 Year
  Sex: Female
  Weight: 59 kg

DRUGS (5)
  1. FORTEO [Suspect]
     Indication: OSTEOPOROSIS
     Dates: start: 20030701
  2. FOSAMAX [Concomitant]
  3. CELEXA [Concomitant]
  4. CALCIUM [Concomitant]
  5. ACTIVELLE [Concomitant]

REACTIONS (13)
  - ANOREXIA [None]
  - ARTHRALGIA [None]
  - BRUXISM [None]
  - CONSTIPATION [None]
  - DYSPNOEA [None]
  - FATIGUE [None]
  - NAUSEA [None]
  - PAIN [None]
  - PAIN IN JAW [None]
  - REGURGITATION OF FOOD [None]
  - RETCHING [None]
  - VOMITING [None]
  - WEIGHT DECREASED [None]
